FAERS Safety Report 7497164-2 (Version None)
Quarter: 2011Q2

REPORT INFORMATION
  Report Type: 
  Country: None (occurrence: None)
  Receive Date: 20110523
  Receipt Date: 20110513
  Transmission Date: 20111010
  Serious: Yes (Hospitalization)
  Sender: FDA-Public Use
  Company Number: US-SANOFI-AVENTIS-2011SA031106

PATIENT
  Age: 76 Year
  Sex: Female

DRUGS (3)
  1. LANTUS [Suspect]
     Indication: TYPE 2 DIABETES MELLITUS
     Dosage: DOSE:30 UNIT(S)
     Route: 058
  2. HUMALOG [Concomitant]
     Dosage: THREE TIMES A DAY WITH MEALS
  3. SOLOSTAR [Suspect]
     Indication: TYPE 2 DIABETES MELLITUS

REACTIONS (7)
  - JOINT INJURY [None]
  - DYSPNOEA [None]
  - PAIN [None]
  - FALL [None]
  - FLUID RETENTION [None]
  - BLOOD GLUCOSE DECREASED [None]
  - FEELING ABNORMAL [None]
